FAERS Safety Report 18220317 (Version 1)
Quarter: 2020Q3

REPORT INFORMATION
  Report Type: Report from Study
  Country: None (occurrence: US)
  Receive Date: 20200902
  Receipt Date: 20200902
  Transmission Date: 20201103
  Serious: Yes (Other)
  Sender: FDA-Public Use
  Company Number: US-ABBVIE-20P-163-3304351-00

PATIENT
  Age: 60 Year
  Sex: Female

DRUGS (6)
  1. IMBRUVICA [Suspect]
     Active Substance: IBRUTINIB
     Route: 048
  2. IMBRUVICA [Suspect]
     Active Substance: IBRUTINIB
     Route: 048
     Dates: start: 20200207
  3. IMBRUVICA [Suspect]
     Active Substance: IBRUTINIB
     Route: 048
     Dates: start: 20200207
  4. IMBRUVICA [Suspect]
     Active Substance: IBRUTINIB
     Route: 048
     Dates: start: 20200205
  5. IMBRUVICA [Suspect]
     Active Substance: IBRUTINIB
     Route: 048
     Dates: start: 20200204, end: 2020
  6. IMBRUVICA [Suspect]
     Active Substance: IBRUTINIB
     Indication: NON-HODGKIN^S LYMPHOMA
     Route: 048
     Dates: start: 20200207

REACTIONS (19)
  - Pustule [Unknown]
  - Vomiting [Unknown]
  - Myalgia [Unknown]
  - Oedema peripheral [Recovered/Resolved]
  - Off label use [Unknown]
  - White blood cell count abnormal [Unknown]
  - Illness [Unknown]
  - Malaise [Unknown]
  - Biopsy cervix [Unknown]
  - Fatigue [Unknown]
  - Kidney infection [Not Recovered/Not Resolved]
  - Nitrituria [Unknown]
  - Osteoporosis [Unknown]
  - Bladder disorder [Unknown]
  - Insomnia [Unknown]
  - Vomiting [Unknown]
  - Erythema [Unknown]
  - Chills [Unknown]
  - Arthralgia [Unknown]

NARRATIVE: CASE EVENT DATE: 2020
